FAERS Safety Report 22124925 (Version 1)
Quarter: 2023Q1

REPORT INFORMATION
  Report Type: Spontaneous
  Country: US (occurrence: US)
  Receive Date: 20230322
  Receipt Date: 20230322
  Transmission Date: 20230418
  Serious: Yes (Hospitalization)
  Sender: FDA-Public Use
  Company Number: US-TEVA-2023-US-2869864

PATIENT
  Age: 72 Year
  Sex: Male

DRUGS (5)
  1. OMEPRAZOLE [Suspect]
     Active Substance: OMEPRAZOLE
     Indication: Gastrooesophageal reflux disease
     Route: 065
  2. ONDANSETRON [Suspect]
     Active Substance: ONDANSETRON
     Indication: Impaired gastric emptying
     Route: 065
  3. ERYTHROMYCIN [Suspect]
     Active Substance: ERYTHROMYCIN
     Indication: Impaired gastric emptying
     Route: 065
  4. METOCLOPRAMIDE [Suspect]
     Active Substance: METOCLOPRAMIDE
     Indication: Impaired gastric emptying
     Route: 065
  5. SCOPOLAMINE [Suspect]
     Active Substance: SCOPOLAMINE
     Indication: Impaired gastric emptying
     Route: 065

REACTIONS (5)
  - Constipation [Unknown]
  - Dysphagia [Unknown]
  - Throat irritation [Unknown]
  - Abdominal pain [Unknown]
  - Drug ineffective [Unknown]
